FAERS Safety Report 4654568-0 (Version None)
Quarter: 2005Q2

REPORT INFORMATION
  Report Type: 
  Country: None (occurrence: None)
  Receive Date: 20050506
  Receipt Date: 20041020
  Transmission Date: 20051028
  Serious: Yes (Hospitalization, Other)
  Sender: FDA-Public Use
  Company Number: VE-BRISTOL-MYERS SQUIBB COMPANY-12739991

PATIENT
  Age: 42 Year
  Sex: Male

DRUGS (3)
  1. ATAZANAVIR [Suspect]
     Indication: HIV INFECTION
     Dosage: INTERRUPTED ON 12-NOV-2004, THEN WITHDRAWN BECAUSE OF THE EVENTS.
     Route: 048
     Dates: start: 20040813, end: 20041112
  2. LAMIVUDINE AND ZIDOVUDINE [Concomitant]
     Indication: HIV INFECTION
     Dosage: LAMIVUDINE 150 MG, ZIDOVUDINE 300 MG, INTERRUPTED ON 12-NOV-2004
     Dates: start: 20040813
  3. RITONAVIR [Concomitant]
     Indication: HIV INFECTION
     Dosage: INTERRUPTED ON 12-NOV-2004
     Dates: start: 20040813

REACTIONS (3)
  - RENAL COLIC [None]
  - RENAL FAILURE ACUTE [None]
  - RENAL TUBULAR NECROSIS [None]
